FAERS Safety Report 6267457-5 (Version None)
Quarter: 2009Q3

REPORT INFORMATION
  Report Type: 
  Country: None (occurrence: None)
  Receive Date: 20090714
  Receipt Date: 20090702
  Transmission Date: 20100115
  Serious: Yes (Hospitalization)
  Sender: FDA-Public Use
  Company Number: US-WYE-H05824108

PATIENT
  Sex: Female
  Weight: 122.58 kg

DRUGS (27)
  1. RELISTOR [Suspect]
     Indication: CONSTIPATION
     Route: 058
     Dates: start: 20080826, end: 20080831
  2. MAGNESIUM OXIDE [Concomitant]
     Indication: MINERAL SUPPLEMENTATION
     Route: 048
  3. DIOVAN [Concomitant]
     Indication: HYPERTENSION
     Route: 048
  4. SEROQUEL [Concomitant]
     Indication: PSYCHOTIC DISORDER
     Route: 048
  5. CHLORPROMAZINE [Concomitant]
     Indication: PSYCHOTIC DISORDER
  6. SIMVASTATIN [Concomitant]
  7. METOPROLOL TARTRATE [Concomitant]
  8. GABAPENTIN [Concomitant]
     Indication: PAIN
  9. MORPHINE SULFATE [Concomitant]
     Indication: PAIN
  10. DEPAKOTE [Concomitant]
  11. HYDROCODONE [Concomitant]
     Dosage: 5-500 3 TIMES DAILY
  12. METFORMIN HYDROCHLORIDE [Concomitant]
  13. ACIDOPHILUS ^ZYMA^ [Concomitant]
     Route: 048
  14. NPH INSULIN [Concomitant]
     Dosage: 49 UNITS IN THE MORNING
     Route: 058
  15. POTASSIUM CHLORIDE [Concomitant]
     Route: 048
  16. SORBITOL [Concomitant]
  17. COUMADIN [Concomitant]
     Route: 065
  18. TYLENOL [Concomitant]
     Indication: PAIN
     Dosage: 325 MG PRN
     Route: 065
  19. BISACODYL [Concomitant]
     Route: 065
  20. HUMULIN R [Concomitant]
     Dosage: 100 UNITS/ML ON A SLIDING SCALE
     Route: 065
  21. MYLANTA [Concomitant]
     Route: 065
  22. BEN GAY [Concomitant]
     Indication: PAIN
     Dosage: UNSPECIFIED/RUBBING CREAM
     Route: 061
  23. BUMEX [Concomitant]
     Route: 065
  24. SEROQUEL [Concomitant]
     Route: 065
  25. MS CONTIN [Concomitant]
     Dosage: UNSPECIFIED
     Route: 065
  26. VICODIN [Concomitant]
  27. OMEPRAZOLE [Concomitant]
     Indication: HERNIA
     Route: 048

REACTIONS (6)
  - DEPRESSED LEVEL OF CONSCIOUSNESS [None]
  - DRUG EFFECT DECREASED [None]
  - INTESTINAL ISCHAEMIA [None]
  - SEPTIC SHOCK [None]
  - UROSEPSIS [None]
  - VOLVULUS [None]
